FAERS Safety Report 23351084 (Version 1)
Quarter: 2023Q4

REPORT INFORMATION
  Report Type: Spontaneous
  Country: US (occurrence: US)
  Receive Date: 20231229
  Receipt Date: 20231229
  Transmission Date: 20240110
  Serious: Yes (Other)
  Sender: FDA-Public Use
  Company Number: US-PFIZER INC-PV202300125151

PATIENT
  Age: 84 Year
  Sex: Male
  Weight: 87.3 kg

DRUGS (6)
  1. BOSULIF [Suspect]
     Active Substance: BOSUTINIB MONOHYDRATE
     Indication: Chronic myeloid leukaemia
     Dosage: TAKE 6 TABLETS (600 MG TOTAL) BY MOUTH DAILY FOR 28 DAYS.TAKE WITH FOOD. SWALLOW WHOLE.DO NOT CRUSH
     Route: 048
     Dates: start: 20221103
  2. BOSULIF [Suspect]
     Active Substance: BOSUTINIB MONOHYDRATE
     Indication: Thrombocytosis
     Dosage: 300 MG, DAILY (TAKE 3 TABLETS (300 MG TOTAL) BY MOUTH DAILY. TAKE WITH FOOD, SWALLOW WHOLE. DO NOT C
     Route: 048
  3. COUMADIN [Suspect]
     Active Substance: WARFARIN SODIUM
  4. ZITHROMAX [Concomitant]
     Active Substance: AZITHROMYCIN DIHYDRATE
     Dosage: 500 MG
     Dates: start: 20230223
  5. ZITHROMAX [Concomitant]
     Active Substance: AZITHROMYCIN DIHYDRATE
     Dosage: 250 MG
     Dates: start: 20230224
  6. NEURONTIN [Concomitant]
     Active Substance: GABAPENTIN
     Dosage: 300 MG, 2X/DAY

REACTIONS (7)
  - Haemoglobin decreased [Unknown]
  - Swelling [Unknown]
  - Fatigue [Unknown]
  - Cough [Unknown]
  - Dyspnoea [Unknown]
  - Dysphonia [Unknown]
  - Retching [Unknown]
